FAERS Safety Report 9003745 (Version 1)
Quarter: 2013Q1

REPORT INFORMATION
  Report Type: Spontaneous
  Country: US (occurrence: US)
  Receive Date: 20130108
  Receipt Date: 20130108
  Transmission Date: 20140127
  Serious: No
  Sender: FDA-Public Use
  Company Number: US-GLAXOSMITHKLINE-A0971005A

PATIENT
  Sex: Male

DRUGS (3)
  1. LOVAZA [Suspect]
     Indication: ANTICOAGULANT THERAPY
     Dosage: 2G TWICE PER DAY
     Route: 048
  2. EFFIENT [Concomitant]
  3. CONCURRENT MEDICATIONS [Concomitant]

REACTIONS (2)
  - Feeling abnormal [Unknown]
  - Sensory disturbance [Unknown]
